FAERS Safety Report 4609720-7 (Version None)
Quarter: 2005Q1

REPORT INFORMATION
  Report Type: 
  Country: None (occurrence: None)
  Receive Date: 20050314
  Receipt Date: 20040712
  Transmission Date: 20050727
  Serious: No
  Sender: FDA-Public Use
  Company Number: 8461

PATIENT
  Age: 21 Year
  Sex: Female

DRUGS (2)
  1. ACYCLOVIR [Suspect]
     Indication: HERPES SIMPLEX
     Dosage: 200 MG BID PO
     Route: 048
     Dates: start: 20040406
  2. ETHINYLESTRADIOL/LEVONORGESTREL [Concomitant]

REACTIONS (5)
  - ABDOMINAL PAIN UPPER [None]
  - DYSPEPSIA [None]
  - HAEMATEMESIS [None]
  - PEPTIC ULCER [None]
  - VOMITING [None]
